FAERS Safety Report 7629698-1 (Version None)
Quarter: 2011Q3

REPORT INFORMATION
  Report Type: 
  Country: None (occurrence: None)
  Receive Date: 20110722
  Receipt Date: 20110707
  Transmission Date: 20111222
  Serious: Yes (Other)
  Sender: FDA-Public Use
  Company Number: GB-WATSON-2011-10773

PATIENT
  Age: 62 Year
  Sex: Male

DRUGS (2)
  1. SERETIDE [Suspect]
     Indication: ASTHMA
     Dosage: UNK
     Route: 055
  2. ALBUTEROL [Suspect]
     Indication: ASTHMA
     Dosage: UNK
     Route: 055

REACTIONS (2)
  - ADVERSE DRUG REACTION [None]
  - PNEUMONIA [None]
